FAERS Safety Report 9046986 (Version 1)
Quarter: 2013Q1

REPORT INFORMATION
  Report Type: Spontaneous
  Country: US (occurrence: None)
  Receive Date: 20130129
  Receipt Date: 20130129
  Transmission Date: 20140127
  Serious: Yes (Other)
  Sender: FDA-Public Use
  Company Number: None

PATIENT
  Age: 16 Year
  Sex: Male
  Weight: 48.99 kg

DRUGS (1)
  1. LISDEXAMFETAMINE [Suspect]
     Dosage: 1 DAILY
     Route: 048
     Dates: start: 20130118, end: 20130121

REACTIONS (1)
  - Weight decreased [None]
